FAERS Safety Report 19894342 (Version 1)
Quarter: 2021Q3

REPORT INFORMATION
  Report Type: Spontaneous
  Country: US (occurrence: US)
  Receive Date: 20210929
  Receipt Date: 20210929
  Transmission Date: 20211014
  Serious: No
  Sender: FDA-Public Use
  Company Number: None

PATIENT
  Age: 77 Year
  Sex: Male
  Weight: 38.1 kg

DRUGS (1)
  1. TAMSULOSIN (TAMSULOSIN HCL 0.4 MG CAP) [Suspect]
     Active Substance: TAMSULOSIN HYDROCHLORIDE
     Indication: BENIGN PROSTATIC HYPERPLASIA
     Route: 048
     Dates: start: 20210116, end: 20210130

REACTIONS (2)
  - Urinary retention [None]
  - Bladder spasm [None]

NARRATIVE: CASE EVENT DATE: 20210127
